FAERS Safety Report 9109300 (Version 2)
Quarter: 2013Q1

REPORT INFORMATION
  Report Type: Report from Study
  Country: US (occurrence: US)
  Receive Date: 20130222
  Receipt Date: 20130318
  Transmission Date: 20140127
  Serious: Yes (Death, Hospitalization)
  Sender: FDA-Public Use
  Company Number: US-PFIZER INC-2013062829

PATIENT
  Age: 77 Year
  Sex: Female
  Weight: 73.02 kg

DRUGS (3)
  1. CELECOXIB [Suspect]
     Indication: OSTEOARTHRITIS
     Dosage: 100 MG, 2X/DAY
     Route: 048
     Dates: start: 20110121, end: 20110525
  2. CELECOXIB [Suspect]
     Indication: RHEUMATOID ARTHRITIS
  3. NEXIUM [Concomitant]
     Indication: PROPHYLAXIS
     Dosage: 20 MG, 1X/DAY
     Route: 048
     Dates: start: 20110121, end: 20110525

REACTIONS (1)
  - Ovarian epithelial cancer metastatic [Fatal]
